FAERS Safety Report 17315763 (Version 1)
Quarter: 2020Q1

REPORT INFORMATION
  Report Type: Spontaneous
  Country: US (occurrence: US)
  Receive Date: 20200124
  Receipt Date: 20200124
  Transmission Date: 20200409
  Serious: Yes (Other)
  Sender: FDA-Public Use
  Company Number: US-UCBSA-2019055116

PATIENT
  Sex: Male

DRUGS (4)
  1. KEPPRA XR [Suspect]
     Active Substance: LEVETIRACETAM
     Indication: PRODUCT USED FOR UNKNOWN INDICATION
     Dosage: 4 DOSAGE FORM DAILY
  2. KEPPRA XR [Suspect]
     Active Substance: LEVETIRACETAM
     Dosage: 1 DOSAGE FORM, 2X/DAY (BID)
  3. KEPPRA XR [Suspect]
     Active Substance: LEVETIRACETAM
     Dosage: UNK, 3X/DAY (TID)
  4. TEGRETAL [Concomitant]
     Active Substance: CARBAMAZEPINE
     Indication: PRODUCT USED FOR UNKNOWN INDICATION

REACTIONS (2)
  - Off label use [Unknown]
  - Seizure [Unknown]
